FAERS Safety Report 24445461 (Version 1)
Quarter: 2024Q4

REPORT INFORMATION
  Report Type: Spontaneous
  Country: US (occurrence: None)
  Receive Date: 20241015
  Receipt Date: 20241015
  Transmission Date: 20250115
  Serious: Yes (Other)
  Sender: Public
  Company Number: None

PATIENT
  Age: 64 Year
  Sex: Female
  Weight: 71.55 kg

DRUGS (1)
  1. ESTRADIOL [Suspect]
     Active Substance: ESTRADIOL
     Indication: Hormone replacement therapy
     Dosage: OTHER FREQUENCY : TWICE WEEKLY;?
     Route: 062
     Dates: end: 20240312

REACTIONS (2)
  - Application site pain [None]
  - Application site irritation [None]

NARRATIVE: CASE EVENT DATE: 20240312
